FAERS Safety Report 23956478 (Version 2)
Quarter: 2024Q3

REPORT INFORMATION
  Report Type: Spontaneous
  Country: US (occurrence: US)
  Receive Date: 20240610
  Receipt Date: 20240709
  Transmission Date: 20241016
  Serious: No
  Sender: SANOFI AVENTIS
  Company Number: US-SANOFI-02077459

PATIENT
  Age: 83 Year
  Sex: Male

DRUGS (1)
  1. LANTUS SOLOSTAR [Suspect]
     Active Substance: INSULIN GLARGINE
     Indication: Type 2 diabetes mellitus
     Dosage: 32 IU, QD
     Route: 065

REACTIONS (3)
  - Blood glucose increased [Unknown]
  - Device mechanical issue [Unknown]
  - Drug ineffective [Unknown]
